FAERS Safety Report 9660668 (Version 1)
Quarter: 2013Q4

REPORT INFORMATION
  Report Type: Spontaneous
  Country: IN (occurrence: IN)
  Receive Date: 20131031
  Receipt Date: 20131031
  Transmission Date: 20140711
  Serious: Yes (Other)
  Sender: FDA-Public Use
  Company Number: IN-ROXANE LABORATORIES, INC.-2013-RO-01757RO

PATIENT
  Age: 48 Year
  Sex: Female

DRUGS (3)
  1. ANASTROZOLE [Suspect]
     Indication: BREAST CANCER
     Dosage: 1 MG
  2. CALCIUM [Suspect]
     Indication: MINERAL SUPPLEMENTATION
  3. ZOLEDRONIC ACID [Suspect]
     Indication: OSTEOPENIA

REACTIONS (2)
  - Tardive dyskinesia [Not Recovered/Not Resolved]
  - Osteopenia [Unknown]
